FAERS Safety Report 10593710 (Version 4)
Quarter: 2014Q4

REPORT INFORMATION
  Report Type: Report from Study
  Country: CA (occurrence: CA)
  Receive Date: 20141119
  Receipt Date: 20141215
  Transmission Date: 20150529
  Serious: Yes (Other)
  Sender: FDA-Public Use
  Company Number: PHHY2014CA125366

PATIENT
  Age: 62 Year
  Sex: Male

DRUGS (2)
  1. SANDOSTATIN LAR DEPOT [Suspect]
     Active Substance: OCTREOTIDE ACETATE
     Indication: ENTEROCUTANEOUS FISTULA
  2. SANDOSTATIN LAR DEPOT [Suspect]
     Active Substance: OCTREOTIDE ACETATE
     Indication: RECTAL CANCER
     Dosage: 20 MG, QMO
     Route: 030
     Dates: start: 20140730

REACTIONS (12)
  - Skin discolouration [Unknown]
  - Malaise [Unknown]
  - Chills [Unknown]
  - Myalgia [Unknown]
  - Blood pressure decreased [Unknown]
  - Rhinalgia [Unknown]
  - Influenza like illness [Unknown]
  - Off label use [Unknown]
  - Gastrointestinal infection [Unknown]
  - Body temperature increased [Unknown]
  - Arthralgia [Unknown]
  - Abdominal pain [Unknown]

NARRATIVE: CASE EVENT DATE: 2014
